FAERS Safety Report 20176521 (Version 1)
Quarter: 2021Q4

REPORT INFORMATION
  Report Type: Spontaneous
  Country: US (occurrence: US)
  Receive Date: 20211213
  Receipt Date: 20211213
  Transmission Date: 20220303
  Serious: Yes (Other)
  Sender: FDA-Public Use
  Company Number: US-ALLERGAN-2141986US

PATIENT
  Sex: Female
  Weight: 73 kg

DRUGS (24)
  1. RESTASIS [Suspect]
     Active Substance: CYCLOSPORINE
     Indication: Product used for unknown indication
     Dosage: 1 GTT
     Route: 047
  2. PLAVIX [Suspect]
     Active Substance: CLOPIDOGREL BISULFATE
     Indication: Product used for unknown indication
     Dosage: UNK
     Route: 048
     Dates: start: 20210128, end: 20210131
  3. MIFEPRISTONE [Suspect]
     Active Substance: MIFEPRISTONE
     Indication: Cushing^s syndrome
     Dosage: 600 MG, QD
     Dates: start: 20210325, end: 20210419
  4. MIFEPRISTONE [Suspect]
     Active Substance: MIFEPRISTONE
     Dosage: 200 MG, QD
     Route: 048
     Dates: start: 20210131
  5. MIFEPRISTONE [Suspect]
     Active Substance: MIFEPRISTONE
     Dosage: 300 MG, QD
     Dates: start: 20210127
  6. ELIQUIS [Suspect]
     Active Substance: APIXABAN
     Indication: Product used for unknown indication
     Dosage: UNK
  7. VITAMIN YEAST [Concomitant]
  8. CLINDAMYCIN [Concomitant]
     Active Substance: CLINDAMYCIN
     Dosage: UNK
  9. AMLODIPINE [Concomitant]
     Active Substance: AMLODIPINE BESYLATE
     Dosage: UNK
  10. ESTRACE [Concomitant]
     Active Substance: ESTRADIOL
  11. HYDRALAZINE [Concomitant]
     Active Substance: HYDRALAZINE HYDROCHLORIDE
     Dosage: UNK
  12. METFORMIN [Concomitant]
     Active Substance: METFORMIN HYDROCHLORIDE
     Dosage: UNK
  13. OZEMPIC [Concomitant]
     Active Substance: SEMAGLUTIDE
     Dosage: UNK
  14. PANTOPRAZOLE [Concomitant]
     Active Substance: PANTOPRAZOLE
     Dosage: UNK
  15. ROSUVASTATIN [Concomitant]
     Active Substance: ROSUVASTATIN
     Dosage: UNK
  16. VALSARTAN [Concomitant]
     Active Substance: VALSARTAN
     Dosage: UNK
  17. SPIRONOLACTONE [Concomitant]
     Active Substance: SPIRONOLACTONE
     Dosage: UNK
  18. POTASSIUM [Concomitant]
     Active Substance: POTASSIUM
     Dosage: UNK
  19. VITAMINS [Concomitant]
     Active Substance: VITAMINS
     Dosage: UNK
  20. CLOPIDOGREL [Concomitant]
     Active Substance: CLOPIDOGREL BISULFATE
     Dosage: UNK
  21. LEVOTHYROXINE [Concomitant]
     Active Substance: LEVOTHYROXINE
     Dosage: UNK
  22. PROBIOTICS NOS [Concomitant]
     Active Substance: PROBIOTICS NOS
     Dosage: UNK
  23. VITAMIN B COMPLEX [Concomitant]
     Active Substance: CYANOCOBALAMIN\DEXPANTHENOL\NIACINAMIDE\PYRIDOXINE HYDROCHLORIDE\RIBOFLAVIN 5^-PHOSPHATE SODIUM\THIA
     Dosage: UNK
  24. VITAMIN D COMPLEX [Concomitant]
     Dosage: UNK

REACTIONS (11)
  - Post procedural haemorrhage [Recovered/Resolved]
  - Dry eye [Unknown]
  - Eye irritation [Unknown]
  - Fatigue [Not Recovered/Not Resolved]
  - Swelling [Unknown]
  - Meniscus injury [Unknown]
  - Haemorrhage [Recovered/Resolved]
  - Blood pressure increased [Unknown]
  - Haemarthrosis [Unknown]
  - Drug withdrawal syndrome [Unknown]
  - Knee operation [Unknown]

NARRATIVE: CASE EVENT DATE: 20210128
